FAERS Safety Report 8850144 (Version 3)
Quarter: 2013Q1

REPORT INFORMATION
  Report Type: Spontaneous
  Country: US (occurrence: US)
  Receive Date: 20121019
  Receipt Date: 20130219
  Transmission Date: 20140127
  Serious: Yes (Other)
  Sender: FDA-Public Use
  Company Number: US-VIIV HEALTHCARE LIMITED-A0992168A

PATIENT
  Age: 54 Year
  Sex: Male

DRUGS (22)
  1. ZIAGEN [Suspect]
     Indication: HIV INFECTION
     Dosage: 300MG TWICE PER DAY
     Route: 048
     Dates: start: 20080320
  2. VIREAD [Suspect]
     Indication: PRODUCT USED FOR UNKNOWN INDICATION
     Route: 065
  3. STATINS [Suspect]
     Indication: PRODUCT USED FOR UNKNOWN INDICATION
     Route: 065
  4. PREZISTA [Suspect]
     Indication: PRODUCT USED FOR UNKNOWN INDICATION
     Route: 065
  5. INTELENCE [Suspect]
     Route: 065
  6. ISENTRESS [Suspect]
     Route: 065
  7. NORVIR [Suspect]
     Route: 065
  8. VALACYCLOVIR [Suspect]
     Route: 065
  9. LEVOCARNITINE [Suspect]
     Route: 065
  10. ACETYLCARNITINE [Suspect]
     Route: 065
  11. FISH OIL [Suspect]
     Route: 065
  12. GLUTAMINE [Suspect]
     Route: 065
  13. VITAMIN D2 [Suspect]
     Route: 065
  14. VITAMIN E [Suspect]
     Route: 065
  15. SELENIUM [Suspect]
     Route: 065
  16. MILK THISTLE [Suspect]
     Route: 065
  17. ALFALFA [Suspect]
     Route: 065
  18. VITAMIN B6 [Suspect]
     Route: 065
  19. VITAMIN B2 [Suspect]
     Route: 065
  20. ALPHA LIPOIC ACID [Suspect]
     Route: 065
  21. COQ-10 [Suspect]
     Route: 065
  22. CHOLINE BITARTRATE [Suspect]
     Route: 065

REACTIONS (13)
  - Hypoaesthesia [Recovering/Resolving]
  - Hypoaesthesia [Unknown]
  - Neuropathy peripheral [Unknown]
  - Paraesthesia [Unknown]
  - Eye pain [Unknown]
  - Gait disturbance [Unknown]
  - Blood magnesium increased [Unknown]
  - Tinnitus [Unknown]
  - Mitochondrial toxicity [Unknown]
  - Adverse event [Unknown]
  - Neuropathy peripheral [Unknown]
  - Nervous system disorder [Unknown]
  - Adverse drug reaction [Unknown]
